FAERS Safety Report 8457232-5 (Version None)
Quarter: 2012Q2

REPORT INFORMATION
  Report Type: 
  Country: None (occurrence: None)
  Receive Date: 20120621
  Receipt Date: 20120619
  Transmission Date: 20120825
  Serious: Yes (Death)
  Sender: FDA-Public Use
  Company Number: US-GILEAD-2012-0055543

PATIENT
  Age: 70 Year
  Sex: Female

DRUGS (7)
  1. LETAIRIS [Suspect]
     Indication: DIALYSIS
  2. LETAIRIS [Suspect]
     Indication: CONNECTIVE TISSUE DISORDER
  3. LETAIRIS [Suspect]
     Indication: RENAL FAILURE CHRONIC
  4. LETAIRIS [Suspect]
     Indication: PULMONARY HYPERTENSION
     Dosage: 10 MG, UNK
     Route: 048
     Dates: start: 20110722, end: 20120523
  5. LETAIRIS [Suspect]
     Indication: DIABETES MELLITUS
  6. LETAIRIS [Suspect]
     Indication: HYPERTENSION
  7. LETAIRIS [Suspect]
     Indication: CHRONIC OBSTRUCTIVE PULMONARY DISEASE

REACTIONS (2)
  - ACUTE RESPIRATORY FAILURE [None]
  - CARDIO-RESPIRATORY ARREST [None]
